FAERS Safety Report 9672779 (Version 4)
Quarter: 2013Q4

REPORT INFORMATION
  Report Type: Spontaneous
  Country: US (occurrence: US)
  Receive Date: 20131106
  Receipt Date: 20131223
  Transmission Date: 20140711
  Serious: Yes (Hospitalization)
  Sender: FDA-Public Use
  Company Number: US-AMGEN-USASP2013068822

PATIENT
  Age: 37 Year
  Sex: Female
  Weight: 191.38 kg

DRUGS (8)
  1. ENBREL [Suspect]
     Indication: PSORIASIS
     Dosage: 50 MG, QWK
     Route: 058
     Dates: start: 20130515
  2. AMBIEN [Concomitant]
     Dosage: UNK
     Route: 048
  3. CYMBALTA [Concomitant]
     Dosage: UNK
     Route: 048
  4. CLONAZEPAM [Concomitant]
     Dosage: UNK
     Route: 048
  5. TRAZODONE [Concomitant]
     Dosage: UNK
     Route: 048
  6. BUSPIRONE [Concomitant]
     Dosage: UNK
     Route: 048
  7. LASIX                              /00032601/ [Concomitant]
     Dosage: UNK
     Route: 048
  8. DEPO PROVERA [Concomitant]
     Dosage: UNK

REACTIONS (4)
  - Psychiatric symptom [Recovering/Resolving]
  - Condition aggravated [Not Recovered/Not Resolved]
  - Psoriasis [Not Recovered/Not Resolved]
  - Skin infection [Recovered/Resolved]
